FAERS Safety Report 10159437 (Version 1)
Quarter: 2014Q2

REPORT INFORMATION
  Report Type: Spontaneous
  Country: US (occurrence: US)
  Receive Date: 20140508
  Receipt Date: 20140508
  Transmission Date: 20141212
  Serious: Yes (Other)
  Sender: FDA-Public Use
  Company Number: US-ELI_LILLY_AND_COMPANY-US201404002528

PATIENT
  Age: 11 Year
  Sex: Female

DRUGS (6)
  1. HUMATROPE [Suspect]
     Indication: HYPOPITUITARISM
     Route: 058
  2. NUTROPIN [Suspect]
     Indication: HYPOPITUITARISM
     Dosage: UNK
     Route: 065
     Dates: start: 2012
  3. HYDROCORTISONE [Concomitant]
     Dosage: UNK, QD
     Route: 048
  4. HYDROCORTISONE [Concomitant]
     Dosage: UNK, QD
     Route: 030
  5. LEVOTHYROXINE [Concomitant]
  6. NORA-BE [Concomitant]
     Indication: HORMONE LEVEL ABNORMAL
     Dosage: UNK, QD

REACTIONS (8)
  - Appendicitis perforated [Unknown]
  - Migraine [Unknown]
  - Bone disorder [Unknown]
  - Hip deformity [Unknown]
  - Spinal deformity [Unknown]
  - Adrenal disorder [Unknown]
  - Back pain [Unknown]
  - Arthralgia [Unknown]
